FAERS Safety Report 10203788 (Version 3)
Quarter: 2014Q2

REPORT INFORMATION
  Report Type: Spontaneous
  Country: US (occurrence: None)
  Receive Date: 20140523
  Receipt Date: 20140624
  Transmission Date: 20141212
  Serious: Yes (Hospitalization, Other)
  Sender: FDA-Public Use
  Company Number: ADR-2014-00868

PATIENT
  Age: 21 Year
  Sex: Female

DRUGS (3)
  1. LIORESAL [Suspect]
     Indication: MUSCLE SPASTICITY
  2. BLOOD THINNER (UNSPECIFIED) [Suspect]
  3. LOVENOX [Suspect]

REACTIONS (12)
  - Underdose [None]
  - Hypertonia [None]
  - Vertigo [None]
  - Pruritus generalised [None]
  - Inner ear disorder [None]
  - Overdose [None]
  - Device occlusion [None]
  - Drug withdrawal syndrome [None]
  - Device inversion [None]
  - Nausea [None]
  - Device kink [None]
  - Suture rupture [None]
